FAERS Safety Report 16124828 (Version 3)
Quarter: 2019Q2

REPORT INFORMATION
  Report Type: Spontaneous
  Country: US (occurrence: US)
  Receive Date: 20190327
  Receipt Date: 20190426
  Transmission Date: 20190711
  Serious: Yes (Hospitalization)
  Sender: FDA-Public Use
  Company Number: US-VERTEX PHARMACEUTICALS-2019-002566

PATIENT
  Age: 22 Year
  Sex: Female

DRUGS (13)
  1. SYMDEKO [Suspect]
     Active Substance: IVACAFTOR\TEZACAFTOR
     Indication: CYSTIC FIBROSIS
     Dosage: TEZACAFTOR 100 MG, IVACAFTOR 150 MG QAM;IVACAFTOR 150 MG QPM
     Route: 048
     Dates: start: 20190125
  2. CITALOPRAM [Concomitant]
     Active Substance: CITALOPRAM HYDROBROMIDE
  3. MINOCYCLINE [Concomitant]
     Active Substance: MINOCYCLINE\MINOCYCLINE HYDROCHLORIDE
  4. SYMBICORT [Concomitant]
     Active Substance: BUDESONIDE\FORMOTEROL FUMARATE DIHYDRATE
  5. GABAPENTIN. [Concomitant]
     Active Substance: GABAPENTIN
  6. IPRATROPIUM [Concomitant]
     Active Substance: IPRATROPIUM
  7. ZENPEP [Concomitant]
     Active Substance: PANCRELIPASE AMYLASE\PANCRELIPASE LIPASE\PANCRELIPASE PROTEASE
  8. IRON [Concomitant]
     Active Substance: IRON
  9. PULMOZYME [Concomitant]
     Active Substance: DORNASE ALFA
  10. ZANTAC [Concomitant]
     Active Substance: RANITIDINE HYDROCHLORIDE
  11. KEPPRA [Concomitant]
     Active Substance: LEVETIRACETAM
  12. TOBRAMYCIN. [Concomitant]
     Active Substance: TOBRAMYCIN
  13. TOBI [Concomitant]
     Active Substance: TOBRAMYCIN

REACTIONS (2)
  - Pneumonia [Recovered/Resolved]
  - Infective pulmonary exacerbation of cystic fibrosis [Recovered/Resolved]

NARRATIVE: CASE EVENT DATE: 20190314
